FAERS Safety Report 9366979 (Version 2)
Quarter: 2013Q3

REPORT INFORMATION
  Report Type: Report from Study
  Country: JP (occurrence: JP)
  Receive Date: 20130625
  Receipt Date: 20130823
  Transmission Date: 20140515
  Serious: Yes (Hospitalization)
  Sender: FDA-Public Use
  Company Number: JP-GLAXOSMITHKLINE-B0901730A

PATIENT
  Age: 67 Year
  Sex: Female
  Weight: 67 kg

DRUGS (9)
  1. TYKERB [Suspect]
     Indication: BREAST CANCER
     Route: 048
     Dates: start: 20120822, end: 20120904
  2. TYKERB [Suspect]
     Indication: BREAST CANCER
     Route: 048
     Dates: start: 20120905, end: 20130214
  3. XELODA [Suspect]
     Indication: BREAST CANCER
     Route: 048
     Dates: start: 20120822, end: 20120904
  4. XELODA [Suspect]
     Indication: BREAST CANCER
     Route: 048
     Dates: start: 20120911, end: 20120925
  5. XELODA [Suspect]
     Indication: BREAST CANCER
     Route: 048
     Dates: start: 20121010, end: 20121016
  6. XELODA [Suspect]
     Indication: BREAST CANCER
     Route: 048
     Dates: start: 20121031, end: 20130103
  7. XELODA [Suspect]
     Indication: BREAST CANCER
     Route: 048
     Dates: start: 20130104, end: 20130117
  8. AMLODIN OD [Concomitant]
     Indication: HYPERTENSION
     Route: 048
     Dates: end: 20130215
  9. ALDACTONE A [Concomitant]
     Indication: LYMPHOEDEMA
     Route: 048
     Dates: end: 20130103

REACTIONS (5)
  - Dyspnoea exertional [Recovering/Resolving]
  - Hepatic function abnormal [Recovered/Resolved]
  - Diarrhoea [Recovered/Resolved]
  - Dry skin [Recovered/Resolved]
  - Pyrexia [Recovered/Resolved]
